FAERS Safety Report 6844551-9 (Version None)
Quarter: 2010Q2

REPORT INFORMATION
  Report Type: 
  Country: None (occurrence: None)
  Receive Date: 20100629
  Receipt Date: 20100510
  Transmission Date: 20101027
  Serious: No
  Sender: FDA-Public Use
  Company Number: US-WYE-H15065710

PATIENT
  Sex: Female

DRUGS (2)
  1. PRISTIQ [Suspect]
     Dosage: 100 MG 1X PER 1 DAY
  2. VTVANSE (LISDEXAMFETAMINE DIMESYLATE) [Concomitant]

REACTIONS (3)
  - CONSTIPATION [None]
  - HYPERSOMNIA [None]
  - OEDEMA PERIPHERAL [None]
